FAERS Safety Report 23320514 (Version 1)
Quarter: 2023Q4

REPORT INFORMATION
  Report Type: Spontaneous
  Country: FR (occurrence: FR)
  Receive Date: 20231220
  Receipt Date: 20231220
  Transmission Date: 20240110
  Serious: Yes (Hospitalization)
  Sender: FDA-Public Use
  Company Number: None

PATIENT
  Age: 58 Year

DRUGS (6)
  1. DIAZEPAM [Suspect]
     Active Substance: DIAZEPAM
     Indication: Product used for unknown indication
     Dosage: 10MG IN THE MORNING-10MG IN THE EVENING
     Route: 048
     Dates: end: 202311
  2. LOXAPINE [Suspect]
     Active Substance: LOXAPINE
     Indication: Autism spectrum disorder
     Dosage: IF NECESSARY
     Route: 065
     Dates: end: 202311
  3. TRIMEPRAZINE [Suspect]
     Active Substance: TRIMEPRAZINE
     Indication: Autism spectrum disorder
     Dosage: THE EVENING
     Route: 048
     Dates: end: 202311
  4. CLOZAPINE [Suspect]
     Active Substance: CLOZAPINE
     Indication: Autism spectrum disorder
     Dosage: 100MG IN THE MORNING-200MG IN THE EVENING
     Route: 048
     Dates: end: 202311
  5. PIPAMPERONE [Suspect]
     Active Substance: PIPAMPERONE
     Indication: Autism spectrum disorder
     Dosage: 20MG IN THE MORNING-20MG IN THE EVENING, SCORED TABLET
     Route: 048
     Dates: end: 202311
  6. ATROPINE [Suspect]
     Active Substance: ATROPINE\ATROPINE SULFATE
     Indication: Salivary hypersecretion
     Route: 060
     Dates: end: 202311

REACTIONS (1)
  - Small intestinal obstruction [Not Recovered/Not Resolved]

NARRATIVE: CASE EVENT DATE: 20231101
